FAERS Safety Report 5414382-5 (Version None)
Quarter: 2007Q3

REPORT INFORMATION
  Report Type: 
  Country: None (occurrence: None)
  Receive Date: 20070814
  Receipt Date: 20070802
  Transmission Date: 20080115
  Serious: Yes (Other)
  Sender: FDA-Public Use
  Company Number: US-SHR-US-2007-029284

PATIENT
  Age: 39 Year
  Sex: Female

DRUGS (4)
  1. BETASERON [Suspect]
     Indication: RELAPSING-REMITTING MULTIPLE SCLEROSIS
     Dosage: 8 MIU, EVERY 2D
     Route: 058
     Dates: start: 20031120, end: 20060901
  2. BETASERON [Suspect]
     Dosage: 4 MIU, EVERY 2D
     Route: 058
     Dates: start: 20060921
  3. BETASERON [Suspect]
     Dosage: 6 MIU, EVERY 2D
     Route: 058
  4. SYNTHROID [Concomitant]

REACTIONS (5)
  - INJECTION SITE REACTION [None]
  - MULTIPLE SCLEROSIS [None]
  - RED BLOOD CELL COUNT DECREASED [None]
  - THYROID CANCER [None]
  - WHITE BLOOD CELL COUNT DECREASED [None]
